FAERS Safety Report 9256125 (Version 1)
Quarter: 2013Q2

REPORT INFORMATION
  Report Type: Spontaneous
  Country: US (occurrence: US)
  Receive Date: 20130425
  Receipt Date: 20130425
  Transmission Date: 20140414
  Serious: No
  Sender: FDA-Public Use
  Company Number: US-AMGEN-USASP2012030635

PATIENT
  Sex: Female
  Weight: 78.01 kg

DRUGS (3)
  1. NEULASTA [Suspect]
     Indication: PRODUCT USED FOR UNKNOWN INDICATION
     Dosage: 6 MG, AFTER CHEMO
  2. TAXOTERE [Concomitant]
     Dosage: 75 MG/ML, Q3WK
     Route: 042
  3. CARBOPLATIN [Concomitant]
     Dosage: UNK UNK, Q3WK
     Route: 042

REACTIONS (1)
  - Rash [Unknown]
